FAERS Safety Report 8609390-7 (Version None)
Quarter: 2012Q3

REPORT INFORMATION
  Report Type: 
  Country: None (occurrence: None)
  Receive Date: 20120821
  Receipt Date: 20120813
  Transmission Date: 20120928
  Serious: Yes (Hospitalization, Other)
  Sender: FDA-Public Use
  Company Number: FR-BRISTOL-MYERS SQUIBB COMPANY-16725749

PATIENT
  Age: 67 Year
  Sex: Female
  Weight: 48 kg

DRUGS (9)
  1. MYCOPHENOLATE MOFETIL (CELLCEPT) [Concomitant]
  2. EUPRESSYL [Concomitant]
     Indication: HYPERTENSION
     Route: 048
     Dates: start: 20111228
  3. NULOJIX [Suspect]
     Indication: RENAL TRANSPLANT
     Dosage: DECREASED TO 250MG-16MAY12
     Route: 042
     Dates: start: 20120324
  4. OMEPRAZOLE [Concomitant]
     Indication: GASTRIC DISORDER
     Route: 048
     Dates: start: 20111214
  5. HYPERIUM [Concomitant]
     Indication: HYPERTENSION
     Route: 048
     Dates: start: 20120419
  6. ATOVAQUONE [Concomitant]
     Route: 048
     Dates: start: 20120802
  7. PREDNISONE TAB [Concomitant]
     Indication: RENAL TRANSPLANT
     Route: 048
     Dates: start: 20111212
  8. VALGANCICLOVIR [Concomitant]
     Indication: ANTIVIRAL PROPHYLAXIS
     Route: 048
     Dates: start: 20120523
  9. AZATHIOPRINE SODIUM [Suspect]
     Indication: RENAL TRANSPLANT
     Dosage: INTERR 19APR12, RESTART 25APR12
     Route: 048
     Dates: start: 20120320, end: 20120419

REACTIONS (2)
  - THROMBOCYTOPENIA [None]
  - PANCYTOPENIA [None]
